FAERS Safety Report 22333773 (Version 1)
Quarter: 2023Q2

REPORT INFORMATION
  Report Type: Report from Study
  Country: US (occurrence: None)
  Receive Date: 20230517
  Receipt Date: 20230517
  Transmission Date: 20230721
  Serious: Yes (Other)
  Sender: FDA-Public Use
  Company Number: US-ROCHE-3349259

PATIENT

DRUGS (14)
  1. CYCLOPHOSPHAMIDE [Suspect]
     Active Substance: CYCLOPHOSPHAMIDE
     Indication: Burkitt^s lymphoma
     Route: 065
     Dates: start: 20121211, end: 20121211
  2. CYCLOPHOSPHAMIDE [Suspect]
     Active Substance: CYCLOPHOSPHAMIDE
     Route: 065
     Dates: start: 20130101, end: 20130101
  3. CYCLOPHOSPHAMIDE [Suspect]
     Active Substance: CYCLOPHOSPHAMIDE
     Dosage: SUBSEQUENT DOSES ON 12/FEB/2013, 05/MAR/2013, 26/MAR/2013
     Route: 065
     Dates: start: 20130122, end: 20130122
  4. DOXORUBICIN [Suspect]
     Active Substance: DOXORUBICIN
     Indication: Burkitt^s lymphoma
     Route: 065
     Dates: start: 20121207, end: 20121210
  5. DOXORUBICIN [Suspect]
     Active Substance: DOXORUBICIN
     Route: 065
     Dates: start: 20121228, end: 20121231
  6. DOXORUBICIN [Suspect]
     Active Substance: DOXORUBICIN
     Dosage: SUBSEQUENT DOSES ON 08/FEB/2013, 01/MAR/2013, 22/MAR/2013
     Route: 065
     Dates: start: 20130118, end: 20130121
  7. ETOPOSIDE [Suspect]
     Active Substance: ETOPOSIDE
     Indication: Burkitt^s lymphoma
     Route: 065
     Dates: start: 20121207, end: 20121211
  8. ETOPOSIDE [Suspect]
     Active Substance: ETOPOSIDE
     Route: 065
     Dates: start: 20121228, end: 20121231
  9. ETOPOSIDE [Suspect]
     Active Substance: ETOPOSIDE
     Dosage: SUBSEQUENT DOSES ON 08/FEB/2013, 01/MAR/2013, 22/MAR/2013
     Route: 065
     Dates: start: 20130118, end: 20130121
  10. FILGRASTIM [Suspect]
     Active Substance: FILGRASTIM
     Indication: Burkitt^s lymphoma
     Dosage: SUBSEQUENT DOSES ON 02/JAN/2013, 23/JAN/2013, 13/FEB/2013, 06/MAR/2013, 27/MAR/2013
     Route: 065
     Dates: start: 20121212, end: 20121219
  11. METHOTREXATE [Suspect]
     Active Substance: METHOTREXATE
     Indication: Burkitt^s lymphoma
     Dosage: SUBSEQUENT DOSES ON 22/JAN/13, 08/FEB/2013, 12/FEB/2013, 01/MAR/2013, 05/MAR/2013, 22/MAR/2013, 26/M
     Route: 065
     Dates: start: 20130118, end: 20130118
  12. PREDNISONE [Suspect]
     Active Substance: PREDNISONE
     Indication: Burkitt^s lymphoma
     Dosage: SUBSEQUENT DOSES ON 28/DEC/2012, 18/JAN/2013, 08/FEB/2013, 01/MAR/2013, 22/MAR/2013
     Route: 065
     Dates: start: 20121207, end: 20121211
  13. RITUXIMAB [Suspect]
     Active Substance: RITUXIMAB
     Indication: Burkitt^s lymphoma
     Dosage: SUBSEQUENT DOSES ON 28/DEC/2012, 18/JAN/2013, 08/FEB/2013, 01/MAR/2013, 22/MAR/2013
     Route: 065
     Dates: start: 20121207, end: 20121207
  14. VINCRISTINE [Suspect]
     Active Substance: VINCRISTINE
     Indication: Burkitt^s lymphoma
     Dosage: SUBSEQUENT DOSES ON 28/DEC/2012, 18/JAN/2013, 08/FEB/2013, 01/MAR/2013, 22/MAR/2013
     Route: 065
     Dates: start: 20121207

REACTIONS (1)
  - Bone pain [Recovered/Resolved]

NARRATIVE: CASE EVENT DATE: 20121220
